FAERS Safety Report 7426622-1 (Version None)
Quarter: 2011Q2

REPORT INFORMATION
  Report Type: 
  Country: None (occurrence: None)
  Receive Date: 20110420
  Receipt Date: 20110411
  Transmission Date: 20111010
  Serious: Yes (Other)
  Sender: FDA-Public Use
  Company Number: CHPA2011US05239

PATIENT
  Age: 75 Year
  Sex: Female
  Weight: 81.633 kg

DRUGS (7)
  1. BENEFIBER PLUS CALCIUM WITH WHEAT DEXTRIN [Suspect]
     Indication: MEDICAL DIET
     Dosage: 2 TSP, QD
     Route: 048
     Dates: start: 20070411
  2. PRAVACHOL [Concomitant]
  3. METOPROLOL [Concomitant]
  4. METFORMIN [Concomitant]
  5. ASPIRIN [Concomitant]
  6. PLAVIX [Concomitant]
  7. NEURONTIN [Concomitant]

REACTIONS (2)
  - DIARRHOEA [None]
  - HYPERTENSION [None]
